FAERS Safety Report 15256822 (Version 1)
Quarter: 2018Q3

REPORT INFORMATION
  Report Type: Spontaneous
  Country: GT (occurrence: GT)
  Receive Date: 20180808
  Receipt Date: 20180808
  Transmission Date: 20181010
  Serious: Yes (Hospitalization)
  Sender: FDA-Public Use
  Company Number: GT-MYLANLABS-2018M1059804

PATIENT
  Age: 44 Year
  Sex: Female

DRUGS (5)
  1. PREDNISONE. [Suspect]
     Active Substance: PREDNISONE
     Indication: PRODUCT USED FOR UNKNOWN INDICATION
     Dosage: LATER INCREASED TO 20MG
     Route: 065
  2. CARBAMAZEPINE. [Suspect]
     Active Substance: CARBAMAZEPINE
     Route: 065
  3. PREDNISONE. [Suspect]
     Active Substance: PREDNISONE
     Route: 065
  4. CARBAMAZEPINE. [Suspect]
     Active Substance: CARBAMAZEPINE
     Indication: PRODUCT USED FOR UNKNOWN INDICATION
     Dosage: LATER, SELF?MEDICATED TO TWICE DOSE AT 600MG
     Route: 065
  5. IBUPROFEN. [Concomitant]
     Active Substance: IBUPROFEN
     Indication: ARTHRALGIA
     Dosage: EVERY 8 HOURS AS NEEDED
     Route: 065

REACTIONS (4)
  - Hyponatraemia [Recovered/Resolved]
  - Hypokalaemia [Recovered/Resolved]
  - Extra dose administered [Recovered/Resolved]
  - Inappropriate antidiuretic hormone secretion [Recovered/Resolved]
